FAERS Safety Report 7568829-9 (Version None)
Quarter: 2011Q2

REPORT INFORMATION
  Report Type: 
  Country: None (occurrence: None)
  Receive Date: 20110623
  Receipt Date: 20110613
  Transmission Date: 20111010
  Serious: Yes (Hospitalization)
  Sender: FDA-Public Use
  Company Number: US-BRISTOL-MYERS SQUIBB COMPANY-14065544

PATIENT
  Age: 54 Year
  Sex: Female

DRUGS (12)
  1. COREG [Concomitant]
     Dates: start: 20010101
  2. COUMADIN [Suspect]
     Indication: THROMBOSIS PROPHYLAXIS
     Route: 048
     Dates: start: 20071108, end: 20080204
  3. CRESTOR [Concomitant]
     Dates: start: 20000818
  4. LASIX [Concomitant]
     Dates: start: 20000818
  5. SYNTHROID [Concomitant]
  6. AMOXIL [Concomitant]
     Dates: start: 20080130, end: 20080204
  7. ACCUPRIL [Concomitant]
     Dates: start: 20000101
  8. CHERATUSSIN AC [Concomitant]
     Dosage: 1 DOSAGE FORM = 5-10 ML EVERY 4-6 HOURS AS NEEDED
     Dates: start: 20080130, end: 20080204
  9. ZOLOFT [Concomitant]
  10. ZETIA [Concomitant]
  11. PLACEBO [Suspect]
     Indication: THROMBOSIS PROPHYLAXIS
     Route: 048
     Dates: start: 20071108, end: 20080204
  12. PLAVIX [Concomitant]
     Dates: start: 20050101

REACTIONS (2)
  - HAEMORRHAGE [None]
  - SHOCK HAEMORRHAGIC [None]
